FAERS Safety Report 6156612-0 (Version None)
Quarter: 2009Q2

REPORT INFORMATION
  Report Type: 
  Country: None (occurrence: None)
  Receive Date: 20090416
  Receipt Date: 20090407
  Transmission Date: 20091009
  Serious: Yes (Other)
  Sender: FDA-Public Use
  Company Number: GB-ROCHE-621499

PATIENT
  Sex: Female
  Weight: 113 kg

DRUGS (7)
  1. ORLISTAT [Suspect]
     Indication: OBESITY
     Route: 048
     Dates: start: 20080827, end: 20090123
  2. AMITRIPTYLINE HCL [Concomitant]
     Indication: PAIN
     Dosage: 25 MG AT LUNCH TIME AND 50 MG AT BED TIME.
     Route: 048
  3. OMEPRAZOLE [Concomitant]
     Indication: HIATUS HERNIA
     Route: 048
  4. ACETAMINOPHEN [Concomitant]
     Indication: PAIN
     Dosage: DOSAGE: ^1000 MG AS AND WHEN^
     Route: 048
  5. CODEINE [Concomitant]
     Indication: PAIN
     Dosage: ONE OR TWO OCCAISIONALLY UP TO 4X A DAY
  6. MORPHINE [Concomitant]
  7. DOMPERIDONE [Concomitant]

REACTIONS (1)
  - BREAST CANCER RECURRENT [None]
